FAERS Safety Report 9928551 (Version 2)
Quarter: 2014Q2

REPORT INFORMATION
  Report Type: Spontaneous
  Country: US (occurrence: US)
  Receive Date: 20140227
  Receipt Date: 20140423
  Transmission Date: 20141212
  Serious: No
  Sender: FDA-Public Use
  Company Number: US-009507513-1402USA011417

PATIENT
  Age: 26 Year
  Sex: Female

DRUGS (2)
  1. NEXPLANON [Suspect]
     Indication: CONTRACEPTION
     Dosage: UNK
     Route: 059
     Dates: start: 20140206, end: 201402
  2. NEXPLANON [Suspect]
     Dosage: HAD ANOTHER DEVICE INSERTED
     Route: 059
     Dates: start: 201402

REACTIONS (1)
  - Device expulsion [Recovered/Resolved]
